FAERS Safety Report 15211059 (Version 1)
Quarter: 2018Q3

REPORT INFORMATION
  Report Type: Spontaneous
  Country: US (occurrence: US)
  Receive Date: 20180629
  Receipt Date: 20180629
  Transmission Date: 20181010
  Serious: Yes (Other)
  Sender: FDA-Public Use
  Company Number: None

PATIENT
  Age: 65 Year
  Sex: Female
  Weight: 73 kg

DRUGS (2)
  1. SODIUM CHLORIDE. [Suspect]
     Active Substance: SODIUM CHLORIDE
     Dosage: ?          OTHER FREQUENCY:ONCE;?
     Route: 041
  2. TRASTUZUMAB. [Suspect]
     Active Substance: TRASTUZUMAB
     Dosage: ?          OTHER FREQUENCY:ONCE;?
     Route: 041

REACTIONS (6)
  - Dyspnoea [None]
  - Hypertension [None]
  - Head discomfort [None]
  - Chills [None]
  - Tachycardia [None]
  - Hypoaesthesia oral [None]

NARRATIVE: CASE EVENT DATE: 20180627
